FAERS Safety Report 12620918 (Version 2)
Quarter: 2016Q4

REPORT INFORMATION
  Report Type: Spontaneous
  Country: US (occurrence: US)
  Receive Date: 20160804
  Receipt Date: 20161014
  Transmission Date: 20170207
  Serious: Yes (Other)
  Sender: FDA-Public Use
  Company Number: US-009507513-1608USA000009

PATIENT
  Age: 20 Year
  Sex: Female

DRUGS (1)
  1. NEXPLANON [Suspect]
     Active Substance: ETONOGESTREL
     Dosage: 1 DF, UNK
     Route: 059
     Dates: start: 20151211, end: 20160727

REACTIONS (4)
  - Implant site pain [Unknown]
  - Surgery [Unknown]
  - Wound [Unknown]
  - Complication of device removal [Unknown]

NARRATIVE: CASE EVENT DATE: 201601
